FAERS Safety Report 5608234-5 (Version None)
Quarter: 2008Q1

REPORT INFORMATION
  Report Type: 
  Country: None (occurrence: None)
  Receive Date: 20080125
  Receipt Date: 20080114
  Transmission Date: 20080703
  Serious: Yes (Hospitalization)
  Sender: FDA-Public Use
  Company Number: 2008-00145

PATIENT
  Age: 78 Year
  Sex: Female
  Weight: 57 kg

DRUGS (1)
  1. VELCADE [Suspect]
     Indication: MULTIPLE MYELOMA
     Dosage: 1.30 MG/M2, INTRAVENOUS
     Route: 042
     Dates: start: 20070601, end: 20071001

REACTIONS (5)
  - BLOOD CREATININE INCREASED [None]
  - DIZZINESS [None]
  - HYPERCALCAEMIA [None]
  - URINARY TRACT INFECTION [None]
  - VOMITING [None]
